FAERS Safety Report 9548747 (Version 2)
Quarter: 2014Q1

REPORT INFORMATION
  Report Type: Spontaneous
  Country: JP (occurrence: None)
  Receive Date: 20130919
  Receipt Date: 20140304
  Transmission Date: 20141002
  Serious: Yes (Hospitalization, Other)
  Sender: FDA-Public Use
  Company Number: CO-OR-JP-2013-072

PATIENT
  Age: 75 Year
  Sex: Male

DRUGS (1)
  1. PREDNISOLONE [Suspect]
     Indication: HUMAN T-CELL LYMPHOTROPIC VIRUS TYPE I INFECTION

REACTIONS (4)
  - Drug ineffective [None]
  - Condition aggravated [None]
  - Pulmonary mass [None]
  - Human T-cell lymphotropic virus type I infection [None]
